FAERS Safety Report 5155927-2 (Version None)
Quarter: 2006Q4

REPORT INFORMATION
  Report Type: 
  Country: None (occurrence: None)
  Receive Date: 20061114
  Receipt Date: 20061031
  Transmission Date: 20070319
  Serious: Yes (Other)
  Sender: FDA-Public Use
  Company Number: 2006111831

PATIENT
  Age: 57 Year
  Sex: Male
  Weight: 78.9259 kg

DRUGS (7)
  1. CHANTIX [Suspect]
     Indication: CHRONIC OBSTRUCTIVE PULMONARY DISEASE
     Dosage: 1 MG, ORAL
     Route: 048
     Dates: start: 20060803, end: 20060831
  2. CHANTIX [Suspect]
     Indication: TOBACCO ABUSE
     Dosage: 1 MG, ORAL
     Route: 048
     Dates: start: 20060803, end: 20060831
  3. EFFEXOR [Concomitant]
  4. ALPRAZOLAM [Concomitant]
  5. TRAZODONE HCL [Concomitant]
  6. NORCO [Concomitant]
  7. PROZAC [Concomitant]

REACTIONS (14)
  - ABNORMAL BEHAVIOUR [None]
  - ABNORMAL DREAMS [None]
  - AMNESIA [None]
  - ANOREXIA [None]
  - BLOOD PRESSURE DECREASED [None]
  - CONFUSIONAL STATE [None]
  - CRYING [None]
  - DEPRESSION [None]
  - FLASHBACK [None]
  - HALLUCINATION [None]
  - INSOMNIA [None]
  - LOGORRHOEA [None]
  - MUSCLE SPASMS [None]
  - PSYCHOTIC DISORDER [None]
